FAERS Safety Report 7542976-X (Version None)
Quarter: 2011Q2

REPORT INFORMATION
  Report Type: 
  Country: None (occurrence: None)
  Receive Date: 20110524
  Receipt Date: 20110418
  Transmission Date: 20111010
  Serious: No
  Sender: FDA-Public Use
  Company Number: 019836

PATIENT
  Sex: Female

DRUGS (4)
  1. CIMZIA [Suspect]
     Indication: CROHN'S DISEASE
     Dosage: (400 MG 1X/28 DAYS SUBCUTANEOUS), (200 MG 1X2 WEEKS SUBCUTANEOUS)
     Route: 058
     Dates: start: 20091024, end: 20101127
  2. CIMZIA [Suspect]
     Indication: CROHN'S DISEASE
     Dosage: (400 MG 1X/28 DAYS SUBCUTANEOUS), (200 MG 1X2 WEEKS SUBCUTANEOUS)
     Route: 058
     Dates: start: 20100804
  3. CIMZIA [Suspect]
  4. CIMZIA [Suspect]

REACTIONS (6)
  - FATIGUE [None]
  - ENERGY INCREASED [None]
  - TOOTH EXTRACTION [None]
  - DRUG INEFFECTIVE [None]
  - HERPES VIRUS INFECTION [None]
  - HEADACHE [None]
